FAERS Safety Report 8157264-0 (Version None)
Quarter: 2012Q1

REPORT INFORMATION
  Report Type: 
  Country: None (occurrence: None)
  Receive Date: 20120222
  Receipt Date: 20120202
  Transmission Date: 20120608
  Serious: Yes (Other)
  Sender: FDA-Public Use
  Company Number: US-ROCHE-1040832

PATIENT

DRUGS (5)
  1. HERCEPTIN [Suspect]
     Indication: BREAST CANCER METASTATIC
     Dosage: LOADING DOSE
     Route: 065
  2. PERTUZUMAB [Suspect]
     Indication: BREAST CANCER METASTATIC
     Dosage: LOADING DOSE
     Route: 065
  3. PERTUZUMAB [Suspect]
     Route: 065
  4. PACLITAXEL [Suspect]
     Indication: BREAST CANCER METASTATIC
     Route: 065
  5. HERCEPTIN [Suspect]
     Route: 065

REACTIONS (5)
  - FATIGUE [None]
  - CHOLECYSTITIS [None]
  - SKIN ULCER [None]
  - SEPSIS [None]
  - MACULAR DEGENERATION [None]
